FAERS Safety Report 17068195 (Version 1)
Quarter: 2019Q4

REPORT INFORMATION
  Report Type: Report from Study
  Country: CO (occurrence: CO)
  Receive Date: 20191123
  Receipt Date: 20191123
  Transmission Date: 20200122
  Serious: Yes (Other)
  Sender: FDA-Public Use
  Company Number: CO-ROCHE-1634086

PATIENT
  Sex: Female

DRUGS (1)
  1. ACTEMRA [Suspect]
     Active Substance: TOCILIZUMAB
     Indication: RHEUMATOID ARTHRITIS
     Dosage: DATE OF DOSE INTERRUPTED: 22/JUL/2015.
     Route: 042
     Dates: start: 20150525

REACTIONS (4)
  - Drug ineffective [Unknown]
  - Peripheral swelling [Recovered/Resolved]
  - Discomfort [Unknown]
  - Tuberculin test positive [Unknown]
